FAERS Safety Report 8313399-0 (Version None)
Quarter: 2012Q2

REPORT INFORMATION
  Report Type: 
  Country: None (occurrence: None)
  Receive Date: 20120426
  Receipt Date: 20120419
  Transmission Date: 20120825
  Serious: Yes (Hospitalization)
  Sender: FDA-Public Use
  Company Number: PHHY2012GT034123

PATIENT
  Age: 87 Year
  Sex: Female

DRUGS (3)
  1. HUMULIN N [Concomitant]
     Dosage: 30 U, 24 HRS
     Route: 058
  2. PK-MERZ [Concomitant]
     Dosage: 100 MG, PER DAY
     Route: 048
  3. DIOVAN HCT [Suspect]
     Dosage: 160 MG VALS AND 12.5 MG HYDRO

REACTIONS (7)
  - HAEMATEMESIS [None]
  - PYREXIA [None]
  - BRONCHOSPASM [None]
  - COUGH [None]
  - PNEUMONIA [None]
  - DYSPNOEA [None]
  - RENAL FAILURE [None]
